FAERS Safety Report 8905380 (Version 1)
Quarter: 2012Q4

REPORT INFORMATION
  Report Type: 
  Country: US (occurrence: US)
  Receive Date: 20121113
  Receipt Date: 20121113
  Transmission Date: 20130627
  Serious: Yes (Hospitalization, Other)
  Sender: FDA-Public Use
  Company Number: US-ELI_LILLY_AND_COMPANY-US201209001343

PATIENT
  Age: 41 Year
  Sex: Female

DRUGS (5)
  1. HUMULIN NPH [Suspect]
     Indication: DIABETES MELLITUS
     Dosage: 15 IU, prn
     Dates: start: 1996
  2. HUMULIN REGULAR [Suspect]
     Indication: TYPE 1 DIABETES MELLITUS
     Dosage: 30 IU, other
     Dates: start: 1996
  3. HUMULIN REGULAR [Suspect]
     Dosage: UNK, prn
  4. ILETIN [Suspect]
     Indication: TYPE 1 DIABETES MELLITUS
     Dosage: UNK
     Dates: start: 1983, end: 1996
  5. ILETIN [Suspect]
     Indication: TYPE 1 DIABETES MELLITUS
     Dosage: UNK
     Dates: start: 1983, end: 1996

REACTIONS (5)
  - Renal transplant [Unknown]
  - Bronchitis [Unknown]
  - Hyperglycaemia [Unknown]
  - Drug ineffective [Unknown]
  - Blood glucose fluctuation [Unknown]
